FAERS Safety Report 8191993-8 (Version None)
Quarter: 2012Q1

REPORT INFORMATION
  Report Type: 
  Country: None (occurrence: None)
  Receive Date: 20120307
  Receipt Date: 20120302
  Transmission Date: 20120608
  Serious: Yes (Other)
  Sender: FDA-Public Use
  Company Number: PHHY2012AU018645

PATIENT
  Sex: Male

DRUGS (1)
  1. CLOZARIL [Suspect]
     Dosage: 25 MG, UNK
     Dates: start: 20020621, end: 20120226

REACTIONS (2)
  - CARDIAC DISORDER [None]
  - TROPONIN INCREASED [None]
